FAERS Safety Report 17052537 (Version 1)
Quarter: 2019Q4

REPORT INFORMATION
  Report Type: Spontaneous
  Country: US (occurrence: US)
  Receive Date: 20191119
  Receipt Date: 20191119
  Transmission Date: 20200122
  Serious: Yes (Other)
  Sender: FDA-Public Use
  Company Number: None

PATIENT
  Age: 72 Year
  Sex: Female
  Weight: 67.05 kg

DRUGS (3)
  1. ATORVASTATIN [Concomitant]
     Active Substance: ATORVASTATIN
  2. YUVAFEM [Suspect]
     Active Substance: ESTRADIOL HEMIHYDRATE
     Indication: ATROPHIC VULVOVAGINITIS
     Dosage: ?          QUANTITY:1 TABLET(S);?
     Route: 067
     Dates: start: 20191118, end: 20191119
  3. FISH OIL [Concomitant]
     Active Substance: FISH OIL

REACTIONS (2)
  - Atrophic vulvovaginitis [None]
  - Condition aggravated [None]

NARRATIVE: CASE EVENT DATE: 20191118
